FAERS Safety Report 13000721 (Version 1)
Quarter: 2016Q4

REPORT INFORMATION
  Report Type: Report from Study
  Country: BR (occurrence: BR)
  Receive Date: 20161206
  Receipt Date: 20161206
  Transmission Date: 20170207
  Serious: Yes (Other)
  Sender: FDA-Public Use
  Company Number: BR-SUN PHARMACEUTICAL INDUSTRIES LTD-2016US-127859

PATIENT
  Sex: Female

DRUGS (11)
  1. RITONAVIR. [Suspect]
     Active Substance: RITONAVIR
     Indication: ACUTE HIV INFECTION
     Dosage: 100 MG, DAILY
     Route: 064
     Dates: start: 20160621, end: 20161111
  2. RETROVIR [Suspect]
     Active Substance: ZIDOVUDINE
     Indication: ACUTE HIV INFECTION
     Dosage: 2 MG/KG/H, DAILY
     Route: 064
     Dates: start: 20161111, end: 20161111
  3. FERROUS SULFATE. [Suspect]
     Active Substance: FERROUS SULFATE
     Indication: PRODUCT USED FOR UNKNOWN INDICATION
     Dosage: UNK
     Route: 064
  4. METHYLDOPAMINE [Suspect]
     Active Substance: DEOXYEPINEPHRINE HYDROCHLORIDE
     Indication: PRODUCT USED FOR UNKNOWN INDICATION
     Route: 064
  5. FOLIC ACID. [Suspect]
     Active Substance: FOLIC ACID
     Indication: PRODUCT USED FOR UNKNOWN INDICATION
     Route: 064
  6. LOSARTAN. [Suspect]
     Active Substance: LOSARTAN
     Indication: PRODUCT USED FOR UNKNOWN INDICATION
     Dosage: UNK
     Route: 064
  7. ASPIRIN. [Suspect]
     Active Substance: ASPIRIN
     Indication: PRODUCT USED FOR UNKNOWN INDICATION
     Dosage: UNK
     Route: 064
  8. REYATAZ [Suspect]
     Active Substance: ATAZANAVIR SULFATE
     Indication: ACUTE HIV INFECTION
     Dosage: 300 MG, DAILY
     Route: 064
     Dates: start: 20160621, end: 20161111
  9. HYDROCHLOROTHIAZIDE. [Suspect]
     Active Substance: HYDROCHLOROTHIAZIDE
     Indication: PRODUCT USED FOR UNKNOWN INDICATION
     Dosage: UNK
     Route: 064
  10. TENOFOVIR + LAMIVUDINE [Suspect]
     Active Substance: LAMIVUDINE\TENOFOVIR
     Indication: ACUTE HIV INFECTION
     Dosage: 600 MG, DAILY
     Route: 064
     Dates: start: 20160621, end: 20161111
  11. RETROVIR [Suspect]
     Active Substance: ZIDOVUDINE
     Dosage: 1 MG/KG/H, DAILY
     Route: 064
     Dates: start: 20161111, end: 20161111

REACTIONS (2)
  - Foetal exposure during pregnancy [Recovered/Resolved]
  - Congenital naevus [Unknown]

NARRATIVE: CASE EVENT DATE: 2016
